FAERS Safety Report 11002690 (Version 2)
Quarter: 2015Q2

REPORT INFORMATION
  Report Type: Report from Study
  Country: US (occurrence: US)
  Receive Date: 20150408
  Receipt Date: 20150519
  Transmission Date: 20150821
  Serious: Yes (Hospitalization)
  Sender: FDA-Public Use
  Company Number: US-SA-2015SA042309

PATIENT
  Age: 72 Year
  Sex: Female
  Weight: 48 kg

DRUGS (11)
  1. ALENDRONATE [Concomitant]
     Active Substance: ALENDRONATE SODIUM
     Dosage: STRENGTH: 35 MG
     Route: 048
     Dates: start: 20150319
  2. AUBAGIO [Suspect]
     Active Substance: TERIFLUNOMIDE
     Indication: MULTIPLE SCLEROSIS
     Route: 048
     Dates: start: 20141204, end: 20150319
  3. EXTAVIA [Concomitant]
     Active Substance: INTERFERON BETA-1B
     Route: 058
     Dates: start: 20140808, end: 20141017
  4. PANTOPRAZOLE [Concomitant]
     Active Substance: PANTOPRAZOLE SODIUM
     Dosage: STRENGTH: 40 MG
     Route: 048
     Dates: start: 20150319
  5. VITAMIN B12 [Concomitant]
     Active Substance: CYANOCOBALAMIN
     Dates: start: 20150319
  6. IMIQUIMOD. [Concomitant]
     Active Substance: IMIQUIMOD
     Dosage: 5%
     Route: 061
     Dates: start: 20150319
  7. DETROL [Concomitant]
     Active Substance: TOLTERODINE TARTRATE
     Dosage: STRENGTH: 1 MG
     Route: 048
     Dates: start: 20140808, end: 20141017
  8. IPRATROPIUM [Concomitant]
     Active Substance: IPRATROPIUM
  9. LATANOPROST. [Concomitant]
     Active Substance: LATANOPROST
     Dosage: EYE DROPS ONE DROP IN EACH EYE, EVERY NIGHT
     Dates: start: 20150319
  10. ZITHROMAX [Concomitant]
     Active Substance: AZITHROMYCIN DIHYDRATE
  11. AUBAGIO [Suspect]
     Active Substance: TERIFLUNOMIDE
     Indication: MULTIPLE SCLEROSIS
     Route: 048
     Dates: start: 20141003, end: 20141203

REACTIONS (2)
  - Liver injury [Unknown]
  - Pneumonia [Unknown]

NARRATIVE: CASE EVENT DATE: 20150224
